FAERS Safety Report 21309832 (Version 1)
Quarter: 2022Q3

REPORT INFORMATION
  Report Type: Spontaneous
  Country: US (occurrence: None)
  Receive Date: 20220908
  Receipt Date: 20220908
  Transmission Date: 20221027
  Serious: Yes (Hospitalization)
  Sender: FDA-Public Use
  Company Number: None

PATIENT
  Age: 66 Year
  Sex: Male
  Weight: 95.25 kg

DRUGS (21)
  1. LENALIDOMIDE [Suspect]
     Active Substance: LENALIDOMIDE
     Indication: Plasma cell myeloma
     Dosage: OTHER FREQUENCY : 2W,1WOFF;?
     Route: 048
  2. ACYCLOVIR [Concomitant]
  3. ALUBTEROL SULFATE [Concomitant]
  4. ASPIRIN [Concomitant]
  5. AYR SALINE NASAL CLARITIN [Concomitant]
  6. COLACE [Concomitant]
  7. DEXAMETHASONE [Concomitant]
  8. GLUCOSAM/CHON-COL.CPLX/D3 [Concomitant]
  9. MAGNESIUM [Concomitant]
  10. MELATONIN [Concomitant]
     Active Substance: MELATONIN
  11. MULTI VITAMIN [Concomitant]
  12. VITAMINS [Concomitant]
     Active Substance: VITAMINS
  13. NEURONTIN [Concomitant]
     Active Substance: GABAPENTIN
  14. NEX IUM [Concomitant]
  15. PERCOCET [Concomitant]
  16. PREDNISONE [Concomitant]
  17. PROCHLORPERAZINE [Concomitant]
  18. TIZANIDINE [Concomitant]
  19. TYLENOL [Concomitant]
  20. VITAMIN B12 [Concomitant]
  21. VITAMIN D3 [Concomitant]

REACTIONS (1)
  - Hospitalisation [None]
